FAERS Safety Report 10587813 (Version 1)
Quarter: 2014Q4

REPORT INFORMATION
  Report Type: Spontaneous
  Country: IT (occurrence: IT)
  Receive Date: 20141117
  Receipt Date: 20141117
  Transmission Date: 20150529
  Serious: Yes (Other)
  Sender: FDA-Public Use
  Company Number: IT-PFIZER INC-2014313434

PATIENT
  Age: 27 Year
  Sex: Male

DRUGS (3)
  1. TAVOR [Suspect]
     Active Substance: LORAZEPAM
     Dosage: 3 DF (2.5MG) SINGLE
     Route: 055
     Dates: start: 20140925, end: 20140925
  2. ZOLOFT [Suspect]
     Active Substance: SERTRALINE HYDROCHLORIDE
     Dosage: 500 MG, SINGLE
     Route: 055
     Dates: start: 20140925, end: 20140925
  3. DEPAKIN [Suspect]
     Active Substance: VALPROATE SODIUM
     Dosage: 500 MG, SINGLE
     Route: 055
     Dates: start: 20140925, end: 20140925

REACTIONS (4)
  - Malaise [Recovering/Resolving]
  - Hallucination [Recovering/Resolving]
  - Drug abuse [Unknown]
  - Toxicity to various agents [Recovering/Resolving]

NARRATIVE: CASE EVENT DATE: 20140925
